FAERS Safety Report 23749064 (Version 2)
Quarter: 2024Q3

REPORT INFORMATION
  Report Type: Report from Study
  Country: FR (occurrence: None)
  Receive Date: 20240416
  Receipt Date: 20240814
  Transmission Date: 20241017
  Serious: Yes (Other)
  Sender: ASTRAZENECA
  Company Number: 2024A045585

PATIENT
  Sex: Female
  Weight: 60 kg

DRUGS (4)
  1. IMFINZI [Suspect]
     Active Substance: DURVALUMAB
     Indication: Bile duct cancer
     Route: 042
     Dates: start: 20231218
  2. IMFINZI [Suspect]
     Active Substance: DURVALUMAB
     Indication: Bile duct cancer
     Route: 042
     Dates: start: 20240116, end: 20240206
  3. GEMCITABINE [Concomitant]
     Active Substance: GEMCITABINE
     Dates: start: 20231218
  4. CISPLATIN [Concomitant]
     Active Substance: CISPLATIN
     Dates: start: 20231218

REACTIONS (3)
  - Cardiotoxicity [Unknown]
  - Toxicity to various agents [Unknown]
  - Thrombocytopenia [Unknown]
